FAERS Safety Report 16135188 (Version 1)
Quarter: 2019Q1

REPORT INFORMATION
  Report Type: Spontaneous
  Country: KE (occurrence: KE)
  Receive Date: 20190331
  Receipt Date: 20190331
  Transmission Date: 20190418
  Serious: Yes (Other)
  Sender: FDA-Public Use
  Company Number: KE-UNICHEM PHARMACEUTICALS (USA) INC-UCM201903-000119

PATIENT

DRUGS (2)
  1. CETIRIZINE, HCL [Suspect]
     Active Substance: CETIRIZINE HYDROCHLORIDE
     Indication: ANTIALLERGIC THERAPY
     Dosage: ONE TABLET
  2. CETIRIZINE, HCL [Suspect]
     Active Substance: CETIRIZINE HYDROCHLORIDE
     Dosage: HALF TABLET

REACTIONS (8)
  - Chest pain [Unknown]
  - Hyperventilation [Unknown]
  - Fatigue [Unknown]
  - Somnolence [Unknown]
  - Impaired work ability [Unknown]
  - Dyspnoea [Unknown]
  - Heart rate increased [Unknown]
  - Chest discomfort [Unknown]
